FAERS Safety Report 6390758-7 (Version None)
Quarter: 2009Q4

REPORT INFORMATION
  Report Type: 
  Country: None (occurrence: None)
  Receive Date: 20091006
  Receipt Date: 20090929
  Transmission Date: 20100525
  Serious: Yes (Other)
  Sender: FDA-Public Use
  Company Number: GB-TEVA-210683ISR

PATIENT
  Age: 75 Year
  Sex: Male

DRUGS (3)
  1. CEFUROXIME [Suspect]
     Indication: PNEUMONIA
  2. CEFUROXIME [Concomitant]
  3. VALPROATE SODIUM [Interacting]
     Indication: EPILEPSY
     Route: 065

REACTIONS (2)
  - DRUG INTERACTION [None]
  - EPILEPSY [None]
